FAERS Safety Report 9462172 (Version 1)
Quarter: 2013Q3

REPORT INFORMATION
  Report Type: Spontaneous
  Country: US (occurrence: None)
  Receive Date: 20130815
  Receipt Date: 20130815
  Transmission Date: 20140515
  Serious: Yes (Hospitalization)
  Sender: FDA-Public Use
  Company Number: None

PATIENT
  Age: 78 Year
  Sex: Female
  Weight: 71.3 kg

DRUGS (18)
  1. XARELTO [Suspect]
     Indication: ATRIAL FIBRILLATION
     Dosage: 15MG DAILY PO?7/6 + 7/7 ONLY
     Route: 048
     Dates: start: 20130706, end: 20130707
  2. LOVASTATIN [Concomitant]
  3. LISINOPRIL [Concomitant]
  4. NORVASC [Concomitant]
  5. ASA [Concomitant]
  6. ADVAIR [Concomitant]
  7. SPIRIVA [Concomitant]
  8. MOM [Concomitant]
  9. ZOFRAN [Concomitant]
  10. PROTONIX [Concomitant]
  11. MIRALAX [Concomitant]
  12. PREDNISONE [Concomitant]
  13. RHYTHMOL [Concomitant]
  14. LASIX [Concomitant]
  15. VIT D [Concomitant]
  16. ALBUTEROL [Concomitant]
  17. CACO3 [Concomitant]
  18. DILTIAZEM [Concomitant]

REACTIONS (5)
  - Atrial fibrillation [None]
  - Dehydration [None]
  - Upper gastrointestinal haemorrhage [None]
  - Gastritis [None]
  - Gastroduodenal ulcer [None]
